FAERS Safety Report 4935179-6 (Version None)
Quarter: 2006Q1

REPORT INFORMATION
  Report Type: 
  Country: None (occurrence: None)
  Receive Date: 20060303
  Receipt Date: 20060303
  Transmission Date: 20060701
  Serious: Yes (Death, Hospitalization)
  Sender: FDA-Public Use
  Company Number: None

PATIENT
  Age: 56 Year
  Sex: Female
  Weight: 109 kg

DRUGS (4)
  1. CYTARABINE [Suspect]
     Indication: ACUTE MYELOID LEUKAEMIA
     Dosage: 1526 MG
     Dates: start: 20060224
  2. DAUNORUBICIN HCL [Suspect]
     Dosage: 588 MG
     Dates: start: 20060224
  3. ETOPOSIDE [Suspect]
     Dosage: 654 MG
     Dates: start: 20060224
  4. G-CSF FILGRASTIM, AMGEN) [Suspect]
     Dosage: 1440 MG
     Dates: start: 20060224

REACTIONS (14)
  - ACUTE RESPIRATORY DISTRESS SYNDROME [None]
  - CIRCULATORY COLLAPSE [None]
  - DIALYSIS [None]
  - ENTEROCOCCAL INFECTION [None]
  - HEPATIC FUNCTION ABNORMAL [None]
  - INFUSION RELATED REACTION [None]
  - MULTI-ORGAN DISORDER [None]
  - PULMONARY ALVEOLAR HAEMORRHAGE [None]
  - RASH [None]
  - RENAL FAILURE ACUTE [None]
  - RESPIRATORY FAILURE [None]
  - SEPSIS SYNDROME [None]
  - THROMBOSIS [None]
  - TUMOUR LYSIS SYNDROME [None]
